FAERS Safety Report 5891936-3 (Version None)
Quarter: 2008Q3

REPORT INFORMATION
  Report Type: 
  Country: None (occurrence: None)
  Receive Date: 20080922
  Receipt Date: 20080910
  Transmission Date: 20090109
  Serious: Yes (Hospitalization)
  Sender: FDA-Public Use
  Company Number: US-PFIZER INC-2008076898

PATIENT
  Sex: Female
  Weight: 77 kg

DRUGS (20)
  1. DOXORUBICIN HCL [Suspect]
     Dosage: DAILY DOSE:97MG
     Route: 042
     Dates: start: 20080212, end: 20080229
  2. DOXORUBICIN HCL [Suspect]
     Dosage: DAILY DOSE:76MG
     Route: 042
     Dates: start: 20080229
  3. PREDNISONE TAB [Suspect]
     Dosage: DAILY DOSE:100MG
     Route: 048
     Dates: start: 20080212
  4. CYCLOPHOSPHAMIDE [Suspect]
     Dosage: DAILY DOSE:1455MG
     Route: 042
     Dates: start: 20080212, end: 20080229
  5. CYCLOPHOSPHAMIDE [Suspect]
     Dosage: DAILY DOSE:1134MG
     Route: 042
     Dates: start: 20080229
  6. VINCRISTINE SULFATE [Suspect]
     Dosage: DAILY DOSE:2MG
     Route: 042
     Dates: start: 20080212
  7. ALL OTHER THERAPEUTIC PRODUCTS [Suspect]
     Indication: THROMBOCYTOPENIA
     Dosage: DAILY DOSE:1000MG-FREQ:FREQUENCY: 1 IN 14 DAYS
     Dates: start: 20080213
  8. RITUXIMAB [Suspect]
     Dosage: DAILY DOSE:730MG
     Route: 042
     Dates: start: 20080212
  9. NEULASTA [Suspect]
     Indication: CHEMOTHERAPY
     Dosage: DAILY DOSE:6MG-FREQ:FREQUENCY: 1 IN 14 DAYS
     Route: 058
     Dates: start: 20080213
  10. BETAMETHASONE DIPROPIONATE [Concomitant]
     Route: 061
  11. MUPIROCIN [Concomitant]
     Route: 061
  12. SULFADIAZINE SILVER [Concomitant]
     Route: 061
  13. HYDROXYCHLOROQUINE SULFATE [Concomitant]
  14. DEXTROPROPOXYPHENE HYDROCHLORIDE [Concomitant]
     Route: 048
     Dates: start: 20080212
  15. POTASSIUM CHLORIDE [Concomitant]
     Dates: start: 20071205
  16. FAMOTIDINE [Concomitant]
     Route: 048
     Dates: start: 20071205
  17. SENOKOT [Concomitant]
     Dosage: FREQ:AS NECESSARY
     Route: 048
     Dates: start: 20071205
  18. ATIVAN [Concomitant]
     Indication: NAUSEA
  19. BENADRYL [Concomitant]
     Indication: NAUSEA
  20. HALDOL [Concomitant]
     Indication: NAUSEA

REACTIONS (3)
  - FEBRILE NEUTROPENIA [None]
  - MUCOSAL INFLAMMATION [None]
  - UPPER RESPIRATORY TRACT INFECTION [None]
